FAERS Safety Report 17017845 (Version 1)
Quarter: 2019Q4

REPORT INFORMATION
  Report Type: Spontaneous
  Country: BR (occurrence: BR)
  Receive Date: 20191111
  Receipt Date: 20191111
  Transmission Date: 20200122
  Serious: Yes (Life-Threatening, Hospitalization)
  Sender: FDA-Public Use
  Company Number: BR-CELGENEUS-BRA-20191003796

PATIENT
  Age: 82 Year
  Sex: Female
  Weight: 54.4 kg

DRUGS (37)
  1. ALLOPURINOL. [Concomitant]
     Active Substance: ALLOPURINOL
     Dosage: 100 MILLIGRAM
     Route: 048
     Dates: start: 20190912
  2. METOCLOPRAMIDE. [Concomitant]
     Active Substance: METOCLOPRAMIDE
     Indication: NAUSEA
     Dosage: 30 MILLIGRAM
     Route: 048
     Dates: start: 20190403
  3. BISACODYL. [Concomitant]
     Active Substance: BISACODYL
     Indication: CONSTIPATION
     Dosage: 10 MILLIGRAM
     Route: 048
     Dates: start: 20190916, end: 20190919
  4. MIRTAZAPINE. [Concomitant]
     Active Substance: MIRTAZAPINE
     Indication: DECREASED APPETITE
     Dosage: 15 MILLIGRAM
     Route: 048
     Dates: start: 20191008
  5. DIPYRONE [Concomitant]
     Active Substance: DIPYRONE
     Indication: PYREXIA
     Dosage: 100 GRAM
     Route: 041
     Dates: start: 20191016
  6. ACICLOVIR [Concomitant]
     Active Substance: ACYCLOVIR
     Indication: ANTIVIRAL PROPHYLAXIS
     Dosage: 600 MILLIGRAM
     Route: 048
     Dates: start: 201902
  7. CAPTORIL [Concomitant]
     Active Substance: CAPTOPRIL
     Dosage: 50 MILLIGRAM
     Route: 048
     Dates: start: 20190621
  8. FILGRASTIM [Concomitant]
     Active Substance: FILGRASTIM
     Dosage: 300 MILLIGRAM
     Route: 058
     Dates: start: 20190928, end: 20191004
  9. MEROPENEM. [Concomitant]
     Active Substance: MEROPENEM
     Indication: FEBRILE NEUTROPENIA
     Dosage: 6 GRAM
     Route: 041
     Dates: start: 20190916, end: 20190919
  10. MEROPENEM. [Concomitant]
     Active Substance: MEROPENEM
     Dosage: 6 GRAM
     Route: 041
     Dates: start: 20190926, end: 20191008
  11. TRIMETHOPRIM. [Concomitant]
     Active Substance: TRIMETHOPRIM
     Indication: PNEUMOCYSTIS JIROVECII PNEUMONIA
     Dosage: 240 MILLIGRAM
     Route: 048
     Dates: start: 201902
  12. NYSTATIN-ZINC OXIDE [Concomitant]
     Indication: TINEA INFECTION
     Dosage: 1 LAYER
     Route: 061
     Dates: start: 20190704
  13. DIPYRONE [Concomitant]
     Active Substance: DIPYRONE
     Indication: PYREXIA
     Dosage: 1 GRAM
     Route: 041
     Dates: start: 20191018
  14. METFORMIN [Concomitant]
     Active Substance: METFORMIN HYDROCHLORIDE
     Indication: HYPERGLYCAEMIA
     Dosage: 1000 MILLIGRAM
     Route: 048
     Dates: start: 20190826, end: 20191005
  15. LEVOFLOXACIN. [Concomitant]
     Active Substance: LEVOFLOXACIN
     Indication: FEBRILE NEUTROPENIA
     Dosage: 500 MILLIGRAM
     Route: 048
     Dates: start: 20190920, end: 20190925
  16. MAGNESIUM SULFATE. [Concomitant]
     Active Substance: MAGNESIUM SULFATE
     Indication: HYPOMAGNESAEMIA
     Dosage: 10
     Route: 041
     Dates: start: 20191005, end: 20191007
  17. DIPHENHYDRAMINE. [Concomitant]
     Active Substance: DIPHENHYDRAMINE
     Indication: PYREXIA
     Dosage: 50 MILLIGRAM
     Route: 041
     Dates: start: 20191018
  18. HYDROCORTISONE. [Concomitant]
     Active Substance: HYDROCORTISONE
     Indication: PYREXIA
     Dosage: 100 MILLIGRAM
     Route: 041
     Dates: start: 20191018
  19. VIDAZA [Suspect]
     Active Substance: AZACITIDINE
     Indication: ACUTE MYELOID LEUKAEMIA
     Dosage: 75 MILLIGRAM/SQ. METER
     Route: 058
     Dates: start: 20190401, end: 20190917
  20. SULFAMETHOXAZOLE TRIMETHOPRIM [Concomitant]
     Active Substance: SULFAMETHOXAZOLE\TRIMETHOPRIM
     Indication: PNEUMOCYSTIS JIROVECII PNEUMONIA
     Dosage: 800/160 MG
     Route: 048
     Dates: start: 201902
  21. CAPTORIL [Concomitant]
     Active Substance: CAPTOPRIL
     Indication: HYPERTENSION
     Dosage: 50 MILLIGRAM
     Route: 048
     Dates: start: 20190621
  22. FUROSEMIDE. [Concomitant]
     Active Substance: FUROSEMIDE
     Indication: HYPERTENSION
     Dosage: 40 MILLIGRAM
     Route: 048
     Dates: start: 201902
  23. ALLOPURINOL. [Concomitant]
     Active Substance: ALLOPURINOL
     Indication: TUMOUR LYSIS SYNDROME
     Dosage: 300 MILLIGRAM
     Route: 048
     Dates: start: 201902
  24. POTASSIUM CHLORIDE. [Concomitant]
     Active Substance: POTASSIUM CHLORIDE
     Indication: HYPOKALAEMIA
     Dosage: 30 MILLILITER
     Route: 041
     Dates: start: 20191004, end: 20191008
  25. KETOCONAZOLE. [Concomitant]
     Active Substance: KETOCONAZOLE
     Indication: TINEA CRURIS
     Dosage: 1 LAYER
     Route: 061
     Dates: start: 20191005
  26. OMEPRAZOLE. [Concomitant]
     Active Substance: OMEPRAZOLE
     Indication: PROPHYLAXIS
     Dosage: 40 MILLIGRAM
     Route: 048
     Dates: start: 201902
  27. BUDESONIDE. [Concomitant]
     Active Substance: BUDESONIDE
     Indication: DYSPNOEA
     Dosage: 800 MICROGRAM
     Route: 055
     Dates: start: 201902
  28. NYSTATIN. [Concomitant]
     Active Substance: NYSTATIN
     Indication: PORPHYRIA
     Dosage: 20 MILLILITER
     Route: 048
     Dates: start: 20190529
  29. MAGNESIUM CHLORIDE. [Concomitant]
     Active Substance: MAGNESIUM CHLORIDE
     Indication: HYPOMAGNESAEMIA
     Dosage: 10.83% 20ML
     Route: 048
     Dates: start: 20190914, end: 20190919
  30. FUROSEMIDE. [Concomitant]
     Active Substance: FUROSEMIDE
     Indication: PULMONARY CONGESTION
     Dosage: 40 MILLIGRAM
     Route: 041
     Dates: start: 20191023, end: 20191024
  31. BUDESONIDE-FORMOTEROL FUMARATE [Concomitant]
     Indication: DYSPNOEA
     Dosage: 12/400 MCG
     Route: 055
     Dates: start: 201902
  32. NYSTATIN. [Concomitant]
     Active Substance: NYSTATIN
     Route: 065
     Dates: start: 20190704
  33. FENOTEROL IPRATROPIUM [Concomitant]
     Indication: DYSPNOEA
     Dosage: 6/30 DROPS
     Route: 055
     Dates: start: 20190616
  34. FILGRASTIM [Concomitant]
     Active Substance: FILGRASTIM
     Indication: NEUTROPENIA
     Dosage: 300 MILLIGRAM
     Route: 058
     Dates: start: 20190909
  35. FILGRASTIM [Concomitant]
     Active Substance: FILGRASTIM
     Dosage: 300 MILLIGRAM
     Route: 041
     Dates: start: 20190912, end: 20190915
  36. NYSTATIN-ZINC OXIDE [Concomitant]
     Route: 065
     Dates: start: 20190704
  37. LACTULOSE. [Concomitant]
     Active Substance: LACTULOSE
     Indication: CONSTIPATION
     Dosage: 60 MILLILITER
     Route: 048
     Dates: start: 20190914, end: 20190919

REACTIONS (1)
  - Febrile neutropenia [Recovered/Resolved]

NARRATIVE: CASE EVENT DATE: 20190926
